FAERS Safety Report 5096550-8 (Version None)
Quarter: 2006Q3

REPORT INFORMATION
  Report Type: 
  Country: None (occurrence: None)
  Receive Date: 20060830
  Receipt Date: 20060822
  Transmission Date: 20061208
  Serious: Yes (Hospitalization)
  Sender: FDA-Public Use
  Company Number: 2006090348

PATIENT
  Age: 77 Year
  Sex: Male
  Weight: 90 kg

DRUGS (5)
  1. LYRICA [Suspect]
     Indication: POLYNEUROPATHY
     Dosage: 150 MG (1 D) ORAL
     Route: 048
     Dates: start: 20060712, end: 20060713
  2. TAMSULOSIN HCL [Concomitant]
  3. PRAVASTATIN SODIUM [Concomitant]
  4. REQUIP [Concomitant]
  5. ALLOPURINOL [Concomitant]

REACTIONS (6)
  - BALANCE DISORDER [None]
  - DERMATITIS ALLERGIC [None]
  - DIZZINESS [None]
  - NAUSEA [None]
  - NYSTAGMUS [None]
  - VOMITING [None]
